FAERS Safety Report 8444952-1 (Version None)
Quarter: 2012Q2

REPORT INFORMATION
  Report Type: 
  Country: None (occurrence: None)
  Receive Date: 20120618
  Receipt Date: 20120522
  Transmission Date: 20120825
  Serious: No
  Sender: FDA-Public Use
  Company Number: US-JNJFOC-20120402574

PATIENT
  Age: 53 Year
  Sex: Female

DRUGS (3)
  1. INVEGA SUSTENNA [Suspect]
     Indication: PRODUCT USED FOR UNKNOWN INDICATION
     Route: 030
  2. COGENTIN [Concomitant]
     Route: 065
  3. AN UNKNOWN MEDICATION [Concomitant]
     Route: 065

REACTIONS (3)
  - URTICARIA [None]
  - TREATMENT NONCOMPLIANCE [None]
  - FEAR [None]
